FAERS Safety Report 9524675 (Version 1)
Quarter: 2013Q3

REPORT INFORMATION
  Report Type: Spontaneous
  Country: US (occurrence: None)
  Receive Date: 20130912
  Receipt Date: 20130912
  Transmission Date: 20140515
  Serious: Yes (Disabling, Other)
  Sender: FDA-Public Use
  Company Number: None

PATIENT
  Age: 63 Year
  Sex: Female

DRUGS (1)
  1. CIPROFLOXACIN HYDROCHLORIDE [Suspect]
     Indication: URINARY TRACT INFECTION
     Dosage: 10 PILLS, EVERY 12 HOURS
     Route: 048
     Dates: start: 20130725, end: 20130730

REACTIONS (6)
  - Dental discomfort [None]
  - Muscle strain [None]
  - Arthralgia [None]
  - Joint lock [None]
  - Gait disturbance [None]
  - Joint stiffness [None]
